FAERS Safety Report 10883343 (Version 1)
Quarter: 2015Q1

REPORT INFORMATION
  Report Type: Report from Study
  Country: AU (occurrence: AU)
  Receive Date: 20150303
  Receipt Date: 20150303
  Transmission Date: 20150721
  Serious: Yes (Life-Threatening, Hospitalization, Other)
  Sender: FDA-Public Use
  Company Number: PHHY2015AU023626

PATIENT
  Sex: Female

DRUGS (2)
  1. NEORAL [Suspect]
     Active Substance: CYCLOSPORINE
     Indication: THROMBOCYTOPENIA
     Dosage: 300 MG, BID
     Route: 065
  2. NEORAL [Suspect]
     Active Substance: CYCLOSPORINE
     Dosage: 100 MG, BID
     Route: 065

REACTIONS (14)
  - Faeces discoloured [Unknown]
  - Thrombocytopenia [Recovered/Resolved]
  - Immunosuppressant drug level increased [Recovered/Resolved]
  - Lethargy [Unknown]
  - Product use issue [Unknown]
  - Colon adenoma [Unknown]
  - Haemoglobin decreased [Not Recovered/Not Resolved]
  - Gastrointestinal haemorrhage [Unknown]
  - Megakaryocytes decreased [Unknown]
  - Colon dysplasia [Unknown]
  - Contusion [Unknown]
  - Dizziness [Unknown]
  - Duodenal polyp [Unknown]
  - Aplastic anaemia [Unknown]
